FAERS Safety Report 7731891-4 (Version None)
Quarter: 2011Q3

REPORT INFORMATION
  Report Type: 
  Country: None (occurrence: None)
  Receive Date: 20110906
  Receipt Date: 20110831
  Transmission Date: 20111222
  Serious: Yes (Other)
  Sender: FDA-Public Use
  Company Number: US-PFIZER INC-2011204274

PATIENT
  Sex: Female

DRUGS (7)
  1. LYRICA [Suspect]
     Dosage: 50 MG
  2. VICODIN [Concomitant]
     Dosage: UNK
  3. LYRICA [Suspect]
     Dosage: 75 MG
  4. LYRICA [Suspect]
     Dosage: 100 MG
  5. XANAX [Concomitant]
     Dosage: UNK
  6. LYRICA [Suspect]
     Dosage: UNK
  7. OXYCONTIN [Concomitant]
     Dosage: UNK

REACTIONS (3)
  - LYMPHOEDEMA [None]
  - PAIN IN EXTREMITY [None]
  - NEURALGIA [None]
